FAERS Safety Report 17520830 (Version 1)
Quarter: 2020Q1

REPORT INFORMATION
  Report Type: Spontaneous
  Country: US (occurrence: US)
  Receive Date: 20200309
  Receipt Date: 20200309
  Transmission Date: 20200409
  Serious: No
  Sender: FDA-Public Use
  Company Number: US-TEIKOKU PHARMA USA-TPU2020-00097

PATIENT
  Sex: Female
  Weight: 99.88 kg

DRUGS (5)
  1. HCTZ [Concomitant]
     Active Substance: HYDROCHLOROTHIAZIDE
     Indication: PERIPHERAL SWELLING
     Dosage: 25 MG DAILY AS PRN FOR SWELLING
  2. DULERA [Concomitant]
     Active Substance: FORMOTEROL FUMARATE DIHYDRATE\MOMETASONE FUROATE
     Indication: ASTHMA
     Dosage: ONCE IN THE MORNING AND ONCE AT NIGHT 100MCG/5MCG
  3. LIDODERM [Suspect]
     Active Substance: LIDOCAINE
     Indication: SPINAL OSTEOARTHRITIS
     Dosage: RIGHT SIDE, LOWER BACK AND PARTIALLY ON THE HIP, 12 HOURS ON AND OFF
     Route: 061
  4. ALLEGRA [Concomitant]
     Active Substance: FEXOFENADINE HYDROCHLORIDE
     Indication: MULTIPLE ALLERGIES
     Dosage: 180 MG-ONCE A DAY PRN
  5. VENTOLIN [Concomitant]
     Active Substance: ALBUTEROL SULFATE
     Indication: ASTHMA
     Dosage: USE AS NEEDED, TAKE IT IN BETWEEN THE DULERA

REACTIONS (3)
  - Gait disturbance [Not Recovered/Not Resolved]
  - Neuropathy peripheral [Not Recovered/Not Resolved]
  - Arthritis [Not Recovered/Not Resolved]
